FAERS Safety Report 16986810 (Version 1)
Quarter: 2019Q4

REPORT INFORMATION
  Report Type: Report from Study
  Country: None (occurrence: US)
  Receive Date: 20191101
  Receipt Date: 20191101
  Transmission Date: 20200122
  Serious: Yes (Other)
  Sender: FDA-Public Use
  Company Number: US-ABBVIE-19K-163-2977929-00

PATIENT
  Sex: Female

DRUGS (4)
  1. STEROIDS [Concomitant]
     Active Substance: UNSPECIFIED INGREDIENT
  2. HUMIRA [Suspect]
     Active Substance: ADALIMUMAB
     Indication: UVEITIS
     Dosage: CITRATE FREE
     Route: 058
     Dates: start: 201906
  3. STEROIDS [Concomitant]
     Active Substance: UNSPECIFIED INGREDIENT
     Indication: PRODUCT USED FOR UNKNOWN INDICATION
  4. HUMIRA [Suspect]
     Active Substance: ADALIMUMAB
     Indication: ANKYLOSING SPONDYLITIS
     Dosage: CITRATE FREE
     Route: 058
     Dates: end: 2019

REACTIONS (7)
  - Stress [Not Recovered/Not Resolved]
  - Photophobia [Not Recovered/Not Resolved]
  - Retinal oedema [Unknown]
  - Rotator cuff repair [Unknown]
  - Arthropathy [Not Recovered/Not Resolved]
  - Retinal detachment [Unknown]
  - Glaucoma [Not Recovered/Not Resolved]

NARRATIVE: CASE EVENT DATE: 2019
